FAERS Safety Report 8139647-8 (Version None)
Quarter: 2012Q1

REPORT INFORMATION
  Report Type: 
  Country: None (occurrence: None)
  Receive Date: 20120215
  Receipt Date: 20120210
  Transmission Date: 20120608
  Serious: Yes (Hospitalization, Other)
  Sender: FDA-Public Use
  Company Number: US-PFIZER INC-2011304355

PATIENT
  Sex: Male

DRUGS (3)
  1. CHANTIX [Suspect]
     Indication: SMOKING CESSATION THERAPY
     Dosage: 0.5MG AND 1MG
     Dates: start: 20071101, end: 20071201
  2. ADVAIR DISKUS 100/50 [Concomitant]
     Indication: ASTHMA
     Dosage: UNK
     Dates: start: 20020101
  3. SINGULAIR [Concomitant]
     Indication: ASTHMA
     Dosage: UNK
     Dates: start: 20020101

REACTIONS (9)
  - DEPRESSION [None]
  - AGGRESSION [None]
  - ABNORMAL BEHAVIOUR [None]
  - ABNORMAL DREAMS [None]
  - TREMOR [None]
  - ANXIETY [None]
  - SUICIDAL IDEATION [None]
  - PANIC ATTACK [None]
  - PARANOIA [None]
